FAERS Safety Report 6594116-1 (Version None)
Quarter: 2010Q1

REPORT INFORMATION
  Report Type: 
  Country: None (occurrence: None)
  Receive Date: 20100218
  Receipt Date: 20100218
  Transmission Date: 20100710
  Serious: Yes (Life-Threatening)
  Sender: FDA-Public Use
  Company Number: None

PATIENT
  Age: 64 Year
  Sex: Male

DRUGS (1)
  1. TRAMADOL HCL [Suspect]
     Indication: PAIN
     Dosage: 25 MG PRN PO
     Route: 048
     Dates: start: 20090626, end: 20090701

REACTIONS (1)
  - ANGIOEDEMA [None]
